FAERS Safety Report 9730563 (Version 3)
Quarter: 2013Q4

REPORT INFORMATION
  Report Type: Spontaneous
  Country: BR (occurrence: BR)
  Receive Date: 20131204
  Receipt Date: 20131215
  Transmission Date: 20140711
  Serious: Yes (Other)
  Sender: FDA-Public Use
  Company Number: BR-AMGEN-BRASP2013071600

PATIENT
  Age: 65 Year
  Sex: Female
  Weight: 61 kg

DRUGS (16)
  1. ENBREL [Suspect]
     Indication: RHEUMATOID ARTHRITIS
     Dosage: 50 MG, ONCE WEEKLY
     Route: 058
     Dates: start: 201306, end: 201311
  2. MOTRIN [Concomitant]
     Indication: ARTHRITIS
     Dosage: 1 TABLET OF STRENGTH 600 MG, TWICE A DAY (EACH 12 HOURS)
     Route: 048
     Dates: start: 201307
  3. MOTRIN [Concomitant]
     Indication: RHEUMATOID ARTHRITIS
     Dosage: UNK
  4. PURAN T4 [Concomitant]
     Indication: HYPERTHYROIDISM
     Dosage: 1 TABLET OF STRENGTH 75 MG, ONCE PER DAY
     Route: 048
     Dates: start: 2003
  5. PURAN T4 [Concomitant]
     Indication: HYPOTHYROIDISM
     Dosage: UNK
  6. PANTOPRAZOLE [Concomitant]
     Indication: GASTRIC DISORDER
     Dosage: 1 TABLET OF STRENGTH 20 MG, ONCE PER DAY
     Route: 048
     Dates: start: 2006
  7. PANTOPRAZOLE [Concomitant]
     Indication: GASTRITIS
     Dosage: UNK
  8. EXODUS                             /01588502/ [Concomitant]
     Indication: ARTHRITIS
     Dosage: 1 TABLET OF STRENGTH 10 MG, ONCE PER DAY
     Route: 048
  9. EUTONIS [Concomitant]
     Indication: SLEEP DISORDER
     Dosage: 1 TABLET OF STRENGTH 2 MG, ONCE PER DAY
     Route: 048
  10. EUTONIS [Concomitant]
     Dosage: 10 MG, 1X/DAY
     Route: 048
  11. PACO [Concomitant]
     Indication: PAIN
     Dosage: 1 TABLET OF STRENGTH [500 MG PARACETAMOL] / [30 MG CODEINE PHOSPHATE], AS NEEDED
     Route: 048
  12. VITAMIN D                          /00107901/ [Concomitant]
     Dosage: UNK
  13. FOLIC ACID [Concomitant]
     Indication: ANAEMIA
     Dosage: UNK
     Dates: start: 2010
  14. TECNOMET                           /00113801/ [Concomitant]
     Indication: RHEUMATOID ARTHRITIS
     Dosage: UNK
     Dates: start: 20131127
  15. SILYBUM MARIANUM [Concomitant]
     Indication: LIVER DISORDER
     Dosage: UNK
     Dates: start: 20131127
  16. FUROSEMIDE [Concomitant]
     Indication: SWELLING
     Dosage: UNK
     Dates: start: 20131127

REACTIONS (15)
  - Pain [Unknown]
  - Sneezing [Not Recovered/Not Resolved]
  - Throat irritation [Not Recovered/Not Resolved]
  - Chondropathy [Unknown]
  - Arthralgia [Unknown]
  - Pain in extremity [Unknown]
  - Liver disorder [Unknown]
  - Renal disorder [Unknown]
  - Grip strength decreased [Unknown]
  - Haematoma [Not Recovered/Not Resolved]
  - Nail disorder [Not Recovered/Not Resolved]
  - Local swelling [Not Recovered/Not Resolved]
  - Joint swelling [Not Recovered/Not Resolved]
  - Swelling face [Not Recovered/Not Resolved]
  - Influenza [Not Recovered/Not Resolved]
